FAERS Safety Report 9333018 (Version 1)
Quarter: 2013Q2

REPORT INFORMATION
  Report Type: Spontaneous
  Country: FR (occurrence: FR)
  Receive Date: 20130606
  Receipt Date: 20130606
  Transmission Date: 20140414
  Serious: Yes (Other)
  Sender: FDA-Public Use
  Company Number: FR-PFIZER INC-2013165235

PATIENT
  Age: 78 Year
  Sex: Female

DRUGS (8)
  1. TAHOR [Suspect]
     Indication: HYPERCHOLESTEROLAEMIA
     Dosage: UNK
     Route: 048
  2. CELIPROLOL HYDROCHLORIDE [Suspect]
     Indication: HYPERTENSION
     Dosage: UNK
     Route: 048
  3. TAXOTERE [Suspect]
     Indication: BREAST CANCER
     Dosage: 157 MG, CYCLIC
     Route: 042
     Dates: start: 20101026, end: 20101026
  4. HEMIGOXINE NATIVELLE [Suspect]
     Indication: ARRHYTHMIA
     Dosage: UNK
     Route: 048
  5. FUROSEMIDE [Concomitant]
     Dosage: UNK
  6. KALEORID [Concomitant]
     Dosage: UNK
  7. PREVISCAN [Concomitant]
     Dosage: UNK
  8. OROCAL [Concomitant]
     Dosage: UNK

REACTIONS (5)
  - Neutropenia [Recovered/Resolved]
  - Asthenia [Recovered/Resolved]
  - Mucosal inflammation [Recovered/Resolved]
  - Nausea [Recovered/Resolved]
  - Anaemia [Recovered/Resolved]
